FAERS Safety Report 14363789 (Version 1)
Quarter: 2018Q1

REPORT INFORMATION
  Report Type: Spontaneous
  Country: US (occurrence: US)
  Receive Date: 20180108
  Receipt Date: 20180108
  Transmission Date: 20180509
  Serious: Yes (Life-Threatening, Hospitalization, Other)
  Sender: FDA-Public Use
  Company Number: US-MYLANLABS-2017M1083884

PATIENT
  Age: 24 Year
  Sex: Male

DRUGS (9)
  1. ZOLPIDEM [Suspect]
     Active Substance: ZOLPIDEM\ZOLPIDEM TARTRATE
     Indication: PRODUCT USED FOR UNKNOWN INDICATION
     Dosage: 10 MG, UNK
  2. CLONAZEPAM. [Suspect]
     Active Substance: CLONAZEPAM
     Indication: PRODUCT USED FOR UNKNOWN INDICATION
     Dosage: 1 MG, UNK
  3. BUPROPION. [Suspect]
     Active Substance: BUPROPION
     Dosage: 150 G, UNK
  4. XYREM [Suspect]
     Active Substance: SODIUM OXYBATE
     Indication: PRODUCT USED FOR UNKNOWN INDICATION
     Dosage: 500 MG/ML, UNK
     Route: 048
  5. SERTRALINE [Suspect]
     Active Substance: SERTRALINE HYDROCHLORIDE
     Indication: PRODUCT USED FOR UNKNOWN INDICATION
     Dosage: 100 MG, UNK
  6. LITHIUM. [Suspect]
     Active Substance: LITHIUM
     Indication: PRODUCT USED FOR UNKNOWN INDICATION
     Dosage: UNK
  7. METHYLPHENIDATE HYDROCHLORIDE. [Suspect]
     Active Substance: METHYLPHENIDATE HYDROCHLORIDE
     Indication: PRODUCT USED FOR UNKNOWN INDICATION
     Dosage: 5 MG, UNK
  8. BUPROPION. [Suspect]
     Active Substance: BUPROPION
     Indication: PRODUCT USED FOR UNKNOWN INDICATION
     Dosage: 300 MG, UNK
  9. MODAFINIL. [Suspect]
     Active Substance: MODAFINIL
     Indication: PRODUCT USED FOR UNKNOWN INDICATION
     Dosage: 200 MG, UNK

REACTIONS (14)
  - Unresponsive to stimuli [Recovered/Resolved]
  - Tachycardia [Not Recovered/Not Resolved]
  - Suicide attempt [Unknown]
  - Haemorrhage [Recovered/Resolved]
  - Choking [Recovered/Resolved]
  - Conduction disorder [Recovered/Resolved]
  - Pulmonary oedema [Recovered/Resolved]
  - Miosis [Recovered/Resolved]
  - Cough [Recovered/Resolved]
  - Electrolyte imbalance [Recovered/Resolved]
  - Unevaluable event [Recovered/Resolved]
  - Hyperhidrosis [Recovered/Resolved]
  - Atelectasis [Recovered/Resolved]
  - Haemoptysis [Recovered/Resolved]
